FAERS Safety Report 12136275 (Version 1)
Quarter: 2016Q1

REPORT INFORMATION
  Report Type: Spontaneous
  Country: US (occurrence: None)
  Receive Date: 20160301
  Receipt Date: 20160301
  Transmission Date: 20160526
  Serious: Yes (Other)
  Sender: FDA-Public Use
  Company Number: None

PATIENT
  Age: 27 Year
  Sex: Female
  Weight: 89.36 kg

DRUGS (4)
  1. WELL AT WALGREENS/OMEPRAZOLE TABLETS 20 MG [Suspect]
     Active Substance: OMEPRAZOLE
     Indication: DYSPEPSIA
     Dosage: 20 MG 1 PILL/A DAY ONCE DAILY MOUTH
     Route: 048
     Dates: start: 20160126, end: 20160126
  2. QUETIAPINE [Concomitant]
     Active Substance: QUETIAPINE
  3. WELL AT WALGREENS/OMEPRAZOLE TABLETS 20 MG [Suspect]
     Active Substance: OMEPRAZOLE
     Indication: GASTROOESOPHAGEAL REFLUX DISEASE
     Dosage: 20 MG 1 PILL/A DAY ONCE DAILY MOUTH
     Route: 048
     Dates: start: 20160126, end: 20160126
  4. AIRBORNE [Concomitant]
     Active Substance: HERBALS\MINERALS\VITAMINS

REACTIONS (1)
  - Headache [None]

NARRATIVE: CASE EVENT DATE: 20160126
